FAERS Safety Report 14128154 (Version 1)
Quarter: 2017Q4

REPORT INFORMATION
  Report Type: Spontaneous
  Country: US (occurrence: None)
  Receive Date: 20171025
  Receipt Date: 20171025
  Transmission Date: 20180321
  Serious: Yes (Life-Threatening, Hospitalization)
  Sender: FDA-Public Use
  Company Number: None

PATIENT
  Age: 68 Year
  Sex: Male
  Weight: 111.31 kg

DRUGS (1)
  1. VANCOMYCIN [Suspect]
     Active Substance: VANCOMYCIN
     Indication: CELLULITIS
     Route: 042
     Dates: start: 20170803, end: 20170803

REACTIONS (10)
  - Vomiting [None]
  - Confusional state [None]
  - Dyspnoea [None]
  - Hyperhidrosis [None]
  - Nausea [None]
  - Loss of consciousness [None]
  - Cardio-respiratory arrest [None]
  - Agitation [None]
  - Lethargy [None]
  - Cold sweat [None]

NARRATIVE: CASE EVENT DATE: 20170803
